FAERS Safety Report 21038880 (Version 2)
Quarter: 2022Q3

REPORT INFORMATION
  Report Type: Other
  Country: US (occurrence: None)
  Receive Date: 20220704
  Receipt Date: 20220708
  Transmission Date: 20221026
  Serious: Yes (Other)
  Sender: FDA-Public Use
  Company Number: US-ROCHE-3128941

PATIENT
  Sex: Female

DRUGS (17)
  1. XOLAIR [Suspect]
     Active Substance: OMALIZUMAB
     Indication: Idiopathic urticaria
     Route: 058
  2. XOLAIR [Suspect]
     Active Substance: OMALIZUMAB
  3. HYDROXYCHLOROQUINE [Concomitant]
     Active Substance: HYDROXYCHLOROQUINE
  4. ZYRTEC [Concomitant]
     Active Substance: CETIRIZINE HYDROCHLORIDE
     Route: 048
  5. ALLEGRA [Concomitant]
     Active Substance: FEXOFENADINE HYDROCHLORIDE
     Route: 048
  6. PEPCID [Concomitant]
     Active Substance: FAMOTIDINE
  7. ALBUTEROL SULFATE [Concomitant]
     Active Substance: ALBUTEROL SULFATE
     Dosage: 108 MCG. 2 PUFFS EVERY 4-6 HOURS AS NEEDED.
  8. CYPROHEPTADINE HYDROCHLORIDE [Concomitant]
     Active Substance: CYPROHEPTADINE HYDROCHLORIDE
     Route: 048
  9. DOXEPIN HCL [Concomitant]
     Active Substance: DOXEPIN HYDROCHLORIDE
     Dosage: 1-3 CAPSULE AT DAILY NIGHT
     Route: 048
  10. FAMOTIDINE [Concomitant]
     Active Substance: FAMOTIDINE
     Route: 048
  11. FLOVENT HFA [Concomitant]
     Active Substance: FLUTICASONE PROPIONATE
     Dosage: 110 MCG 2 PUFFS DAILY
  12. FOLIC ACID [Concomitant]
     Active Substance: FOLIC ACID
     Route: 048
  13. HYDROCORTISONE [Concomitant]
     Active Substance: HYDROCORTISONE
     Dosage: 2 TAB BID
     Route: 048
  14. HYDROXYCHLOROQUINE SULFATE [Concomitant]
     Active Substance: HYDROXYCHLOROQUINE SULFATE
     Route: 048
  15. MUPIROCIN [Concomitant]
     Active Substance: MUPIROCIN
  16. PAXLOVID [Concomitant]
     Active Substance: NIRMATRELVIR\RITONAVIR
     Dosage: 20X150 MG + 10X100MG, 3 TAB AM, 3 TAB PM
     Route: 048
  17. PREDNISONE [Concomitant]
     Active Substance: PREDNISONE
     Dosage: 5MG, 10MG, 50 MG
     Route: 048

REACTIONS (19)
  - Anaphylactic reaction [Unknown]
  - Angioedema [Recovered/Resolved]
  - COVID-19 [Unknown]
  - Dermatitis allergic [Unknown]
  - Dyspnoea [Unknown]
  - Wheezing [Unknown]
  - Anxiety [Unknown]
  - Chest discomfort [Unknown]
  - Urticaria [Unknown]
  - Sleep disorder [Unknown]
  - White blood cell count increased [Unknown]
  - Blood glucose decreased [Unknown]
  - Hypoaesthesia [Unknown]
  - Depression [Unknown]
  - Cough [Unknown]
  - Swelling [Unknown]
  - Neutrophil count increased [Unknown]
  - Immature granulocyte count increased [Unknown]
  - Blood potassium decreased [Unknown]
